FAERS Safety Report 8904567 (Version 1)
Quarter: 2012Q4

REPORT INFORMATION
  Report Type: 
  Country: CA (occurrence: CA)
  Receive Date: 20121113
  Receipt Date: 20121113
  Transmission Date: 20130627
  Serious: Yes (Other)
  Sender: FDA-Public Use
  Company Number: PHBS2000CA10882

PATIENT
  Age: 75 Year
  Sex: Female

DRUGS (4)
  1. EXELON [Suspect]
     Indication: DEMENTIA ALZHEIMER^S TYPE
     Dosage: 1.5 mg, BID
     Route: 048
     Dates: start: 20000928
  2. EXELON [Suspect]
     Dosage: 3 mg, BID
     Route: 048
     Dates: start: 20001101
  3. EXELON [Suspect]
     Dosage: 1.5 mg, BID
     Route: 048
  4. EXELON [Suspect]
     Dosage: 4.5 mg, BID
     Route: 048
     Dates: start: 20000928

REACTIONS (5)
  - Loss of consciousness [Recovered/Resolved]
  - Dizziness [Recovered/Resolved]
  - Vomiting [Recovered/Resolved]
  - Nausea [Recovered/Resolved]
  - Anxiety [Recovered/Resolved]
